FAERS Safety Report 5250358-9 (Version None)
Quarter: 2007Q1

REPORT INFORMATION
  Report Type: 
  Country: None (occurrence: None)
  Receive Date: 20070228
  Receipt Date: 20060414
  Transmission Date: 20070707
  Serious: No
  Sender: FDA-Public Use
  Company Number: US-GLAXOSMITHKLINE-A0600092A

PATIENT
  Age: 30 Year
  Sex: Female

DRUGS (2)
  1. LAMICTAL [Suspect]
     Indication: BIPOLAR DISORDER
     Dosage: 25MGK PER DAY
     Route: 048
     Dates: start: 20060323, end: 20060402
  2. ZOLOFT [Concomitant]

REACTIONS (2)
  - MOUTH ULCERATION [None]
  - RASH [None]
